FAERS Safety Report 14698614 (Version 4)
Quarter: 2023Q1

REPORT INFORMATION
  Report Type: Spontaneous
  Country: PL (occurrence: PL)
  Receive Date: 20180330
  Receipt Date: 20230226
  Transmission Date: 20230417
  Serious: No
  Sender: FDA-Public Use
  Company Number: PHHY2018PL049884

PATIENT
  Sex: Female

DRUGS (3)
  1. OXYTOCIN [Suspect]
     Active Substance: OXYTOCIN
     Indication: Labour induction
     Dosage: UNK, INFUSION
     Route: 042
     Dates: start: 20170502
  2. AMOXICILLIN\CLAVULANATE POTASSIUM [Suspect]
     Active Substance: AMOXICILLIN\CLAVULANATE POTASSIUM
     Indication: Product used for unknown indication
     Dosage: UNK
     Route: 065
     Dates: start: 20170501
  3. DINOPROSTONE [Suspect]
     Active Substance: DINOPROSTONE
     Indication: Uterine hypotonus
     Dosage: UNK
     Route: 019
     Dates: start: 20170503

REACTIONS (1)
  - Maternal exposure during pregnancy [Unknown]
